FAERS Safety Report 5669039-2 (Version None)
Quarter: 2008Q1

REPORT INFORMATION
  Report Type: 
  Country: None (occurrence: None)
  Receive Date: 20080313
  Receipt Date: 20080313
  Transmission Date: 20080703
  Serious: Yes (Other)
  Sender: FDA-Public Use
  Company Number: None

PATIENT
  Sex: Male
  Weight: 70.3075 kg

DRUGS (1)
  1. VYVANSE [Suspect]
     Indication: ATTENTION DEFICIT/HYPERACTIVITY DISORDER
     Dosage: 50MG 1 DAILY PO
     Route: 048
     Dates: start: 20080105, end: 20080312

REACTIONS (4)
  - ANOREXIA [None]
  - HEART RATE INCREASED [None]
  - INSOMNIA [None]
  - WEIGHT DECREASED [None]
